FAERS Safety Report 9522451 (Version 1)
Quarter: 2013Q3

REPORT INFORMATION
  Report Type: Spontaneous
  Country: US (occurrence: US)
  Receive Date: 20130913
  Receipt Date: 20130913
  Transmission Date: 20140515
  Serious: No
  Sender: FDA-Public Use
  Company Number: US-009507513-1309USA004881

PATIENT
  Age: 13 Year
  Sex: Female

DRUGS (3)
  1. DULERA [Suspect]
     Indication: ASTHMA
     Dosage: 100/5 MICROGRAM, TWO PUFFS, BID
     Route: 055
  2. XOPENEX [Concomitant]
     Dosage: UNKNOWN
  3. SINGULAIR [Concomitant]
     Dosage: UNKNOWN

REACTIONS (1)
  - Hypohidrosis [Unknown]
